FAERS Safety Report 8114882-3 (Version None)
Quarter: 2012Q1

REPORT INFORMATION
  Report Type: 
  Country: None (occurrence: None)
  Receive Date: 20120206
  Receipt Date: 20120124
  Transmission Date: 20120608
  Serious: No
  Sender: FDA-Public Use
  Company Number: US-JNJFOC-20120110675

PATIENT
  Sex: Female
  Weight: 81.65 kg

DRUGS (17)
  1. FLONASE [Concomitant]
     Indication: MULTIPLE ALLERGIES
     Route: 055
  2. DURAGESIC-100 [Suspect]
     Indication: BACK PAIN
     Dosage: 25 UG/HR + 12.5 UG/HR
     Route: 062
     Dates: start: 20110101
  3. OMEPRAZOLE [Concomitant]
     Indication: DUODENOGASTRIC REFLUX
     Route: 048
  4. LISINOPRIL [Concomitant]
     Indication: BLOOD PRESSURE
     Route: 065
     Dates: start: 20080101
  5. NUVIGIL [Concomitant]
     Indication: SLEEP APNOEA SYNDROME
     Route: 065
     Dates: start: 20111201
  6. NEURONTIN [Concomitant]
     Indication: NEURALGIA
     Route: 065
     Dates: start: 20050101
  7. KLOR-CON [Concomitant]
     Indication: BLOOD POTASSIUM
     Route: 065
  8. OXYBUTYNIN [Concomitant]
     Indication: BLADDER DISORDER
     Route: 065
  9. OMEPRAZOLE [Concomitant]
     Indication: HIATUS HERNIA
     Route: 048
  10. TRAZODONE HCL [Concomitant]
     Indication: SLEEP DISORDER THERAPY
     Route: 065
     Dates: start: 20030101
  11. SINGULAIR [Concomitant]
     Indication: MULTIPLE ALLERGIES
     Route: 055
     Dates: start: 20040101
  12. TRIAMTERENE AND HYDROCHLOROTHIAZIDE [Concomitant]
     Indication: BLOOD PRESSURE
     Route: 065
  13. WELLBUTRIN SR [Concomitant]
     Indication: DEPRESSION
     Route: 065
     Dates: start: 20010101
  14. NORVASC [Concomitant]
     Indication: BLOOD PRESSURE
     Route: 065
     Dates: start: 20060101
  15. NORCO [Concomitant]
     Indication: PAIN
     Dosage: 3-4 TIMES A DAY AS NEEDED
     Route: 065
  16. ESTRACE [Concomitant]
     Indication: HORMONE REPLACEMENT THERAPY
     Route: 065
     Dates: start: 19840101
  17. CELEXA [Concomitant]
     Indication: DEPRESSION
     Route: 065
     Dates: start: 20060101

REACTIONS (3)
  - PRODUCT QUALITY ISSUE [None]
  - WRONG TECHNIQUE IN DRUG USAGE PROCESS [None]
  - PRODUCT ADHESION ISSUE [None]
